FAERS Safety Report 8306523-7 (Version None)
Quarter: 2012Q2

REPORT INFORMATION
  Report Type: 
  Country: None (occurrence: None)
  Receive Date: 20120424
  Receipt Date: 20120410
  Transmission Date: 20120825
  Serious: Yes (Hospitalization, Other)
  Sender: FDA-Public Use
  Company Number: FR-AMGEN-FRASP2012002594

PATIENT
  Age: 70 Year
  Sex: Male
  Weight: 74 kg

DRUGS (8)
  1. SULFASALAZINE [Concomitant]
     Indication: ANKYLOSING SPONDYLITIS
     Dosage: UNK
     Dates: start: 19950101
  2. LANSOPRAZOLE [Concomitant]
     Dosage: UNK
  3. IRBESARTAN [Concomitant]
     Dosage: UNK
  4. ENBREL [Suspect]
     Indication: ANKYLOSING SPONDYLITIS
     Dosage: 50 MG, WEEKLY
     Route: 058
     Dates: start: 20100913
  5. TENORDATE [Concomitant]
     Dosage: UNK
  6. METFORMIN HCL [Concomitant]
     Dosage: UNK
  7. PLAVIX [Concomitant]
     Dosage: UNK
  8. ATORVASTATIN [Concomitant]
     Dosage: UNK

REACTIONS (4)
  - VISION BLURRED [None]
  - HEADACHE [None]
  - DIPLOPIA [None]
  - OCULAR MYASTHENIA [None]
